FAERS Safety Report 8971532 (Version 1)
Quarter: 2012Q4

REPORT INFORMATION
  Report Type: 
  Country: IT (occurrence: IT)
  Receive Date: 20121217
  Receipt Date: 20121217
  Transmission Date: 20130627
  Serious: Yes (Life-Threatening, Hospitalization)
  Sender: FDA-Public Use
  Company Number: IT-ASTRAZENECA-2012SE93321

PATIENT
  Age: 12555 Day
  Sex: Female

DRUGS (3)
  1. LUCEN [Suspect]
     Indication: INTENTIONAL OVERDOSE
     Route: 048
     Dates: start: 20121201, end: 20121201
  2. LANSOX [Suspect]
     Indication: INTENTIONAL OVERDOSE
     Route: 048
     Dates: start: 20121201, end: 20121201
  3. TRANEXAMIC ACID [Suspect]
     Indication: INTENTIONAL OVERDOSE
     Route: 048
     Dates: start: 20121201, end: 20121201

REACTIONS (4)
  - Sopor [Recovered/Resolved]
  - Drug abuse [Unknown]
  - Suicide attempt [Unknown]
  - Tachycardia [Unknown]
